FAERS Safety Report 4665830-X (Version None)
Quarter: 2005Q2

REPORT INFORMATION
  Report Type: 
  Country: None (occurrence: None)
  Receive Date: 20050519
  Receipt Date: 20050316
  Transmission Date: 20051028
  Serious: No
  Sender: FDA-Public Use
  Company Number: US-GLAXOSMITHKLINE-A0550057A

PATIENT
  Sex: Male

DRUGS (2)
  1. AVODART [Suspect]
     Indication: BENIGN PROSTATIC HYPERPLASIA
     Dosage: .5MG IN THE MORNING
     Route: 048
     Dates: start: 20041101, end: 20050303
  2. ACTONEL [Concomitant]

REACTIONS (3)
  - DRUG INEFFECTIVE [None]
  - DYSURIA [None]
  - PAIN [None]
